FAERS Safety Report 6895336-9 (Version None)
Quarter: 2010Q3

REPORT INFORMATION
  Report Type: 
  Country: None (occurrence: None)
  Receive Date: 20100802
  Receipt Date: 20100721
  Transmission Date: 20110219
  Serious: Yes (Hospitalization)
  Sender: FDA-Public Use
  Company Number: PL-PFIZER INC-2006143114

PATIENT
  Age: 60 Year
  Sex: Male
  Weight: 69 kg

DRUGS (8)
  1. SUNITINIB MALATE [Suspect]
     Indication: RENAL CANCER
     Dosage: 50 MG, 1X/DAY
     Route: 048
     Dates: start: 20060523, end: 20061113
  2. PALIN [Concomitant]
     Route: 048
     Dates: start: 20061108
  3. NO-SPA [Concomitant]
     Route: 048
     Dates: start: 20061108
  4. AMIZEPIN [Concomitant]
     Route: 048
     Dates: start: 20060927
  5. KETONAL [Concomitant]
     Route: 048
     Dates: start: 20061025
  6. BIOXETIN [Concomitant]
     Route: 048
     Dates: start: 20060517
  7. FLUCONAZOLE [Concomitant]
     Route: 048
     Dates: start: 20060802
  8. POLPRAZOL [Concomitant]
     Route: 048
     Dates: start: 20060802

REACTIONS (1)
  - EXFOLIATIVE RASH [None]
